FAERS Safety Report 6187700-0 (Version None)
Quarter: 2009Q2

REPORT INFORMATION
  Report Type: 
  Country: None (occurrence: None)
  Receive Date: 20090513
  Receipt Date: 20090429
  Transmission Date: 20091009
  Serious: Yes (Other)
  Sender: FDA-Public Use
  Company Number: US-PFIZER INC-2005165594

PATIENT
  Sex: Female
  Weight: 90.7 kg

DRUGS (15)
  1. PROVERA [Suspect]
     Indication: HORMONE REPLACEMENT THERAPY
     Dosage: 5 MG, UNK
     Route: 048
     Dates: start: 19930225, end: 19930426
  2. PROVERA [Suspect]
     Indication: MENOPAUSE
     Dosage: 2.5 MG, UNK
     Route: 048
     Dates: start: 19930426, end: 19961108
  3. PREMARIN [Suspect]
     Indication: HORMONE REPLACEMENT THERAPY
     Dates: start: 19930225, end: 19930426
  4. PREMARIN [Suspect]
     Indication: MENOPAUSE
  5. OGEN [Suspect]
     Indication: HORMONE REPLACEMENT THERAPY
     Dosage: 0.625 MG, UNK
     Dates: start: 19930426, end: 19961108
  6. OGEN [Suspect]
     Indication: MENOPAUSE
  7. CYCRIN [Suspect]
     Indication: HORMONE REPLACEMENT THERAPY
     Dosage: 2.5 MG, UNK
     Dates: start: 19961108, end: 19980601
  8. CYCRIN [Suspect]
     Indication: MENOPAUSE
  9. ESTROPIPATE [Suspect]
     Indication: HORMONE REPLACEMENT THERAPY
     Dosage: 0.625 MG, UNK
     Dates: start: 19961108, end: 19980601
  10. ESTROPIPATE [Suspect]
     Indication: MENOPAUSE
  11. PREMPRO [Suspect]
     Indication: HORMONE REPLACEMENT THERAPY
     Dosage: 0.625/5MG
     Dates: start: 19980601, end: 20020901
  12. PREMPRO [Suspect]
     Indication: MENOPAUSE
     Dosage: 0.625/2.5MGUNK
     Dates: start: 20020905
  13. NORVASC [Concomitant]
     Indication: HYPERTENSION
     Dosage: UNK
     Dates: start: 19970901
  14. ACCURETIC [Concomitant]
     Indication: HYPERTENSION
     Dosage: UNK
     Dates: start: 20000901, end: 20021201
  15. LIPITOR [Concomitant]
     Indication: BLOOD CHOLESTEROL
     Dosage: UNK
     Dates: start: 20000501

REACTIONS (1)
  - BREAST CANCER [None]
